FAERS Safety Report 8145891-6 (Version None)
Quarter: 2012Q1

REPORT INFORMATION
  Report Type: 
  Country: None (occurrence: None)
  Receive Date: 20120217
  Receipt Date: 20110617
  Transmission Date: 20120608
  Serious: No
  Sender: FDA-Public Use
  Company Number: US-ABBOTT-11P-163-0733806-00

PATIENT
  Sex: Female
  Weight: 67.646 kg

DRUGS (4)
  1. BYSTOLIC [Concomitant]
     Indication: HYPERTENSION
     Dosage: NOT REPORTED
     Dates: start: 20110610
  2. SIMCOR [Suspect]
     Indication: BLOOD CHOLESTEROL INCREASED
     Dosage: 500/20 MG DAILY
     Route: 048
     Dates: start: 20110610, end: 20110615
  3. ASPIRIN [Concomitant]
     Indication: CARDIAC DISORDER
     Dosage: NOT REPORTED
  4. LANOXIN [Concomitant]
     Indication: CARDIAC DISORDER
     Dosage: NOT REPORTED

REACTIONS (3)
  - HEADACHE [None]
  - NAUSEA [None]
  - ABDOMINAL PAIN [None]
